FAERS Safety Report 8322268-1 (Version None)
Quarter: 2012Q2

REPORT INFORMATION
  Report Type: 
  Country: None (occurrence: None)
  Receive Date: 20120430
  Receipt Date: 20120424
  Transmission Date: 20120825
  Serious: Yes (Hospitalization)
  Sender: FDA-Public Use
  Company Number: CZ-PFIZER INC-2012078148

PATIENT
  Age: 84 Year
  Sex: Female

DRUGS (3)
  1. VITACALCIN [Concomitant]
  2. CLINDAMYCIN HCL [Suspect]
     Dosage: 300 MG
     Route: 048
  3. VITAMIN D [Concomitant]

REACTIONS (1)
  - DRUG ERUPTION [None]
